FAERS Safety Report 11378469 (Version 1)
Quarter: 2015Q3

REPORT INFORMATION
  Report Type: Spontaneous
  Country: US (occurrence: US)
  Receive Date: 20150811
  Receipt Date: 20150811
  Transmission Date: 20151125
  Serious: No
  Sender: FDA-Public Use
  Company Number: US-ELI_LILLY_AND_COMPANY-US201212006206

PATIENT
  Sex: Female
  Weight: 46.71 kg

DRUGS (4)
  1. BOSENTAN [Concomitant]
     Active Substance: BOSENTAN
     Dosage: UNK
  2. ADCIRCA [Suspect]
     Active Substance: TADALAFIL
  3. BABY ASPIRIN [Concomitant]
     Active Substance: ASPIRIN
     Dosage: UNK
  4. TYVASO [Concomitant]
     Active Substance: TREPROSTINIL
     Indication: COR PULMONALE CHRONIC
     Dosage: 36 UG, UNK
     Dates: start: 20121208

REACTIONS (3)
  - Pleuritic pain [Unknown]
  - Abdominal pain [Unknown]
  - Upper respiratory tract infection [Unknown]
